FAERS Safety Report 5460552-X (Version None)
Quarter: 2007Q3

REPORT INFORMATION
  Report Type: 
  Country: None (occurrence: None)
  Receive Date: 20070919
  Receipt Date: 20070502
  Transmission Date: 20080115
  Serious: Yes (Other)
  Sender: FDA-Public Use
  Company Number: FR-PFIZER INC-2007036350

PATIENT
  Sex: Male
  Weight: 74 kg

DRUGS (6)
  1. LYRICA [Suspect]
     Indication: PAIN
     Dosage: DAILY DOSE:375MG
     Route: 048
  2. LYRICA [Suspect]
     Indication: BRACHIAL PLEXUS INJURY
  3. BUPRENORPHINE HCL [Concomitant]
     Indication: BRACHIAL PLEXUS INJURY
     Route: 048
  4. IMIPRAMINE [Concomitant]
     Indication: BRACHIAL PLEXUS INJURY
     Route: 048
  5. CLONAZEPAM [Concomitant]
  6. NAPROXEN [Concomitant]

REACTIONS (4)
  - CONSTIPATION [None]
  - FALL [None]
  - HYPERHIDROSIS [None]
  - PAIN [None]
